FAERS Safety Report 17565017 (Version 1)
Quarter: 2020Q1

REPORT INFORMATION
  Report Type: Spontaneous
  Country: US (occurrence: US)
  Receive Date: 20200319
  Receipt Date: 20200319
  Transmission Date: 20200409
  Serious: Yes (Life-Threatening, Hospitalization, Disabling, Other)
  Sender: FDA-Public Use
  Company Number: None

PATIENT
  Age: 57 Year
  Sex: Male
  Weight: 72 kg

DRUGS (8)
  1. TPN [Suspect]
     Active Substance: AMINO ACIDS\DEXTROSE\ELECTROLYTES NOS\SOYBEAN OIL
     Indication: PARENTERAL NUTRITION
     Route: 042
     Dates: start: 20191101, end: 20200127
  2. OXYCODONE [Concomitant]
     Active Substance: OXYCODONE
  3. METYKLPREDNISILONE [Concomitant]
  4. ENSURE [Concomitant]
     Active Substance: AMINO ACIDS\DEXTROSE\ELECTROLYTES NOS\SOYBEAN OIL\VITAMINS
  5. NORMAL SALINE [Concomitant]
     Active Substance: SODIUM CHLORIDE
  6. DEHYDRATED ALCOHOL/ETHANOL [Concomitant]
  7. FENTANYL. [Concomitant]
     Active Substance: FENTANYL
  8. ELIQUIS [Concomitant]
     Active Substance: APIXABAN

REACTIONS (10)
  - Polyuria [None]
  - Product formulation issue [None]
  - Weight decreased [None]
  - Dehydration [None]
  - Hyperglycaemia [None]
  - Renal disorder [None]
  - Cardiac disorder [None]
  - Metabolic disorder [None]
  - Infection [None]
  - Product compounding quality issue [None]

NARRATIVE: CASE EVENT DATE: 20191101
